FAERS Safety Report 24928211 (Version 1)
Quarter: 2025Q1

REPORT INFORMATION
  Report Type: Spontaneous
  Country: IN (occurrence: IN)
  Receive Date: 20250205
  Receipt Date: 20250205
  Transmission Date: 20250408
  Serious: Yes (Death)
  Sender: PFIZER
  Company Number: IN-PFIZER INC-PV202300112280

PATIENT
  Age: 84 Year
  Sex: Female

DRUGS (16)
  1. PALBOCICLIB [Suspect]
     Active Substance: PALBOCICLIB
     Indication: Breast cancer metastatic
     Route: 048
  2. PALBOCICLIB [Suspect]
     Active Substance: PALBOCICLIB
     Route: 048
  3. XGEVA [Concomitant]
     Active Substance: DENOSUMAB
     Dosage: 120 MG, EVERY 3 WEEKS
     Route: 058
  4. XGEVA [Concomitant]
     Active Substance: DENOSUMAB
     Dosage: 120 MG, EVERY 3 MONTHS
     Route: 058
  5. FEMARA [Concomitant]
     Active Substance: LETROZOLE
     Dosage: 2.5 MG, 1X/DAY (28 DAYS)
  6. ACTAPRO [Concomitant]
     Dosage: 300 MG, 1X/DAY (BEFORE LUNCH)
  7. NEXPRO-RD [Concomitant]
     Dosage: 40 MG, 1X/DAY
  8. ASCORBIC ACID\BIOTIN\CALCIUM PANTOTHENATE\CYANOCOBALAMIN\FOLIC ACID\NI [Concomitant]
     Active Substance: ASCORBIC ACID\BIOTIN\CALCIUM PANTOTHENATE\CYANOCOBALAMIN\FOLIC ACID\NIACINAMIDE\PYRIDOXINE HYDROCHLO
     Dosage: 1 DF, 1X/DAY
  9. PYRIDOXINE HYDROCHLORIDE [Concomitant]
     Active Substance: PYRIDOXINE HYDROCHLORIDE
     Dosage: 40 MG, 1X/DAY
  10. CALCINOL [CALCIUM CARBONATE] [Concomitant]
  11. FEXOFENADINE\MONTELUKAST [Concomitant]
     Active Substance: FEXOFENADINE\MONTELUKAST
     Dosage: UNK, 1X/DAY FOR 5 DAYS
  12. CIPLOX [CIPROFLOXACIN HYDROCHLORIDE] [Concomitant]
     Dosage: 500 MG, 2X/DAY
  13. LETROZOLE [Concomitant]
     Active Substance: LETROZOLE
     Dosage: 2.5 MG, 1X/DAY
  14. LEVOTHYROXINE [Concomitant]
     Active Substance: LEVOTHYROXINE
     Dosage: 50 UG, 1X/DAY
  15. SHELCAL XT [Concomitant]
     Dosage: 1 DF, 1X/DAY
  16. CALCIROL [COLECALCIFEROL] [Concomitant]

REACTIONS (13)
  - Death [Fatal]
  - Cardiomegaly [Unknown]
  - Pleural effusion [Unknown]
  - Cough [Unknown]
  - Haemoglobin decreased [Recovering/Resolving]
  - White blood cell count decreased [Not Recovered/Not Resolved]
  - Neutrophil count decreased [Not Recovered/Not Resolved]
  - Pyrexia [Unknown]
  - Blood thyroid stimulating hormone increased [Unknown]
  - Transferrin decreased [Unknown]
  - White blood cells urine positive [Unknown]
  - Blood folate increased [Unknown]
  - Off label use [Unknown]

NARRATIVE: CASE EVENT DATE: 20240101
